FAERS Safety Report 9373040 (Version 1)
Quarter: 2013Q2

REPORT INFORMATION
  Report Type: Spontaneous
  Country: US (occurrence: US)
  Receive Date: 20130627
  Receipt Date: 20130627
  Transmission Date: 20140414
  Serious: Yes (Other)
  Sender: FDA-Public Use
  Company Number: US-GLAXOSMITHKLINE-A1025710A

PATIENT
  Age: 29 Year
  Sex: Female
  Weight: 64.5 kg

DRUGS (10)
  1. BENLYSTA [Suspect]
     Indication: SYSTEMIC LUPUS ERYTHEMATOSUS
     Route: 065
     Dates: start: 201303
  2. CLONIDINE [Concomitant]
  3. PREDNISONE [Concomitant]
  4. PLAQUENIL [Concomitant]
  5. LOVENOX [Concomitant]
  6. LUNESTA [Concomitant]
  7. CELLCEPT [Concomitant]
  8. OMEPRAZOLE [Concomitant]
  9. TOPROL [Concomitant]
  10. TRAMADOL [Concomitant]

REACTIONS (2)
  - Intestinal ischaemia [Recovering/Resolving]
  - Abdominal pain [Recovering/Resolving]
